FAERS Safety Report 4321066-3 (Version None)
Quarter: 2004Q1

REPORT INFORMATION
  Report Type: 
  Country: None (occurrence: None)
  Receive Date: 20040322
  Receipt Date: 20040213
  Transmission Date: 20041129
  Serious: Yes (Death, Other)
  Sender: FDA-Public Use
  Company Number: A-US2002-00021

PATIENT
  Age: 68 Year
  Sex: Female

DRUGS (12)
  1. TRACLEER [Suspect]
     Indication: PULMONARY HYPERTENSION
     Dosage: 62.5 MG, BID, ORAL
     Route: 048
     Dates: start: 20020212, end: 20020215
  2. DIGOXIN [Concomitant]
  3. FLOLAN [Concomitant]
  4. PREDNISONE [Concomitant]
  5. LASIX [Concomitant]
  6. ALDACTONE [Concomitant]
  7. FOSAMAX [Concomitant]
  8. NOVACORT (CLOPREDNOL) [Concomitant]
  9. PLAQUENIL [Concomitant]
  10. PRILOSEC [Concomitant]
  11. COUMADIN [Concomitant]
  12. OXYGEN (OXYGEN) [Concomitant]

REACTIONS (5)
  - CYANOSIS [None]
  - DEATH [None]
  - HEADACHE [None]
  - NAUSEA [None]
  - VOMITING [None]
